FAERS Safety Report 10660615 (Version 5)
Quarter: 2017Q4

REPORT INFORMATION
  Report Type: Spontaneous
  Country: DE (occurrence: DE)
  Receive Date: 20141217
  Receipt Date: 20171020
  Transmission Date: 20180320
  Serious: Yes (Hospitalization)
  Sender: FDA-Public Use
  Company Number: DE-TAKEDA-2014TUS013927

PATIENT
  Age: 27 Year
  Sex: Female
  Weight: 54 kg

DRUGS (3)
  1. MESALAZINE [Concomitant]
     Active Substance: MESALAMINE
     Indication: CROHN^S DISEASE
     Dosage: 4 G, QD
     Route: 065
     Dates: start: 20130625
  2. ENTYVIO [Suspect]
     Active Substance: VEDOLIZUMAB
     Indication: CROHN^S DISEASE
     Dosage: UNK
     Route: 065
     Dates: start: 20140729, end: 20141104
  3. PREDNISOLONE. [Concomitant]
     Active Substance: PREDNISOLONE
     Indication: CROHN^S DISEASE
     Dosage: 100 MG, QD
     Route: 065
     Dates: start: 20140930

REACTIONS (11)
  - Herpes dermatitis [Recovering/Resolving]
  - Pulpitis dental [Unknown]
  - Arthralgia [Unknown]
  - Erythema nodosum [Recovering/Resolving]
  - Crohn^s disease [Recovering/Resolving]
  - Drug effect incomplete [Recovering/Resolving]
  - Arthritis [Recovering/Resolving]
  - Joint swelling [Unknown]
  - Rash [Unknown]
  - Normocytic anaemia [Recovering/Resolving]
  - Faecal calprotectin increased [Recovering/Resolving]

NARRATIVE: CASE EVENT DATE: 2014
